FAERS Safety Report 8958115 (Version 1)
Quarter: 2012Q4

REPORT INFORMATION
  Report Type: 
  Country: US (occurrence: US)
  Receive Date: 20121211
  Receipt Date: 20121211
  Transmission Date: 20130627
  Serious: Yes (Other)
  Sender: FDA-Public Use
  Company Number: US-BAYER-2012-127939

PATIENT
  Age: 68 Year
  Sex: Female
  Weight: 45.35 kg

DRUGS (2)
  1. ALKA-SELTZER PLUS DAY,ALKA-SELTZER PLUS NIGHT [Suspect]
     Indication: COLD SYMPTOMS
     Dosage: 2 DF, TID
     Route: 048
     Dates: start: 201211, end: 20121201
  2. AMLODIPINE BESYLATE [Concomitant]
     Dosage: UNK

REACTIONS (1)
  - Deafness unilateral [Not Recovered/Not Resolved]
